FAERS Safety Report 22973612 (Version 4)
Quarter: 2025Q2

REPORT INFORMATION
  Report Type: Spontaneous
  Country: GB (occurrence: GB)
  Receive Date: 20230922
  Receipt Date: 20250502
  Transmission Date: 20250716
  Serious: Yes (Other)
  Sender: PFIZER
  Company Number: GB-PFIZER INC-PV202300158606

PATIENT
  Age: 64 Year
  Sex: Male

DRUGS (5)
  1. GENOTROPIN [Suspect]
     Active Substance: SOMATROPIN
     Indication: Growth hormone deficiency
     Dosage: 0.4 MG, DAILY
     Route: 058
     Dates: start: 2023
  2. LEVOTHYROXINE [Concomitant]
     Active Substance: LEVOTHYROXINE
  3. HYDROCORTISONE [Concomitant]
     Active Substance: HYDROCORTISONE
  4. TESTOSTERONE [Concomitant]
     Active Substance: TESTOSTERONE
  5. TESTOSTERONE [Concomitant]
     Active Substance: TESTOSTERONE

REACTIONS (6)
  - Brain neoplasm [Unknown]
  - Brain fog [Unknown]
  - Amnesia [Unknown]
  - Blood pressure abnormal [Unknown]
  - Device use error [Unknown]
  - Device information output issue [Unknown]
